FAERS Safety Report 15615584 (Version 2)
Quarter: 2019Q1

REPORT INFORMATION
  Report Type: Spontaneous
  Country: BR (occurrence: BR)
  Receive Date: 20181114
  Receipt Date: 20190115
  Transmission Date: 20190417
  Serious: No
  Sender: FDA-Public Use
  Company Number: BR-ROCHE-2209712

PATIENT
  Age: 51 Year
  Sex: Female
  Weight: 83 kg

DRUGS (7)
  1. ANTAK [Concomitant]
     Active Substance: RANITIDINE HYDROCHLORIDE
     Indication: PREMEDICATION
     Dosage: FORM STRENGTH: 25 MG/ML INJECTABLE AMPOULE 2 ML?ON DAY 1, 8 AND 15
     Route: 042
  2. DIFENIDRIN [Concomitant]
     Active Substance: DIPHENHYDRAMINE
     Indication: PREMEDICATION
     Dosage: FORM STRENGTH: 50 MG INJECTABLE AMPOULE 1 ML?ON DAY 1, 8 AND 15
     Route: 042
  3. PACLITAXEL. [Suspect]
     Active Substance: PACLITAXEL
     Indication: INVASIVE DUCTAL BREAST CARCINOMA
     Dosage: ON DAY 1, 8 AND 15 OF EACH CYCLE, FOR 4 CYCLES
     Route: 042
     Dates: start: 20180126
  4. HERCEPTIN [Suspect]
     Active Substance: TRASTUZUMAB
     Indication: INVASIVE DUCTAL BREAST CARCINOMA
     Dosage: ON DAY 1 OF EACH CYCLE, FOR 4 CYCLES
     Route: 042
     Dates: start: 20180126
  5. HERCEPTIN [Suspect]
     Active Substance: TRASTUZUMAB
     Dosage: ON DAY 8 AND 15 OF EACH CYCLE, FOR 4 CYCLES
     Route: 042
  6. KYTRIL [Concomitant]
     Active Substance: GRANISETRON HYDROCHLORIDE
     Indication: PREMEDICATION
     Dosage: ON DAY 1, 8 AND 15
     Route: 042
  7. DECADRON [Concomitant]
     Active Substance: DEXAMETHASONE
     Indication: PREMEDICATION
     Dosage: FORM STRENGTH: 4 MG/ML INJECTABLE AMPOULE BOTTLE 2.5 ML?ON DAY 1, 8 AND 15
     Route: 042

REACTIONS (2)
  - Hypersensitivity [Recovered/Resolved]
  - Skin toxicity [Recovered/Resolved]
